FAERS Safety Report 15887655 (Version 2)
Quarter: 2020Q1

REPORT INFORMATION
  Report Type: Spontaneous
  Country: PT (occurrence: PT)
  Receive Date: 20190130
  Receipt Date: 20200317
  Transmission Date: 20200409
  Serious: Yes (Hospitalization, Other)
  Sender: FDA-Public Use
  Company Number: PT-AXELLIA-002194

PATIENT
  Age: 84 Year
  Sex: Male

DRUGS (5)
  1. CEFTAZIDIME/CEFTAZIDIME PENTAHYDRATE [Suspect]
     Active Substance: CEFTAZIDIME
     Indication: ENDOPHTHALMITIS
     Dosage: ALSO TAKEN IN FORM OF INJECTION
     Route: 047
  2. VANCOMYCIN [Suspect]
     Active Substance: VANCOMYCIN
     Indication: ENDOPHTHALMITIS
     Route: 050
  3. VANCOMYCIN [Suspect]
     Active Substance: VANCOMYCIN
     Indication: ENDOPHTHALMITIS
     Dosage: UNK, UNKNOWN FREQ.
  4. CEFUROXIME. [Suspect]
     Active Substance: CEFUROXIME
     Indication: ENDOPHTHALMITIS
     Dosage: UNK, UNKNOWN FREQ.
  5. AMOXICILLIN/CLAVULANIC ACID [Suspect]
     Active Substance: AMOXICILLIN\CLAVULANIC ACID
     Indication: URINARY TRACT INFECTION
     Dosage: 875+125 MG, EVERY 12 HOURS
     Route: 048
     Dates: start: 20170130, end: 20170203

REACTIONS (4)
  - Endophthalmitis [Unknown]
  - Drug ineffective [Unknown]
  - Amaurosis [Not Recovered/Not Resolved]
  - Escherichia infection [Unknown]

NARRATIVE: CASE EVENT DATE: 20170201
